FAERS Safety Report 4292034-5 (Version None)
Quarter: 2004Q1

REPORT INFORMATION
  Report Type: 
  Country: None (occurrence: None)
  Receive Date: 20040126
  Receipt Date: 20031118
  Transmission Date: 20041129
  Serious: No
  Sender: FDA-Public Use
  Company Number: USA031152955

PATIENT
  Sex: Female

DRUGS (2)
  1. FORTEO [Suspect]
  2. MULTIVITAMINS WITH IRON [Concomitant]

REACTIONS (3)
  - FAECES DISCOLOURED [None]
  - GASTROENTERITIS VIRAL [None]
  - MACULAR DEGENERATION [None]
